FAERS Safety Report 11420731 (Version 1)
Quarter: 2015Q3

REPORT INFORMATION
  Report Type: Spontaneous
  Country: US (occurrence: US)
  Receive Date: 20150826
  Receipt Date: 20150826
  Transmission Date: 20151125
  Serious: No
  Sender: FDA-Public Use
  Company Number: US-BAYER-2015-407117

PATIENT
  Age: 81 Year
  Sex: Female
  Weight: 76.19 kg

DRUGS (12)
  1. BAYER LOW DOSE [Concomitant]
     Active Substance: ASPIRIN
     Indication: ISCHAEMIC HEART DISEASE PROPHYLAXIS
  2. XANAX [Concomitant]
     Active Substance: ALPRAZOLAM
  3. KLONOPIN [Concomitant]
     Active Substance: CLONAZEPAM
  4. AMLODIPINE [Concomitant]
     Active Substance: AMLODIPINE BESYLATE
  5. FENOFIBRATE. [Concomitant]
     Active Substance: FENOFIBRATE
  6. DIGOXIN. [Concomitant]
     Active Substance: DIGOXIN
  7. METOPROLOL SUCCINATE. [Concomitant]
     Active Substance: METOPROLOL SUCCINATE
  8. LEVOTHYROXINE. [Concomitant]
     Active Substance: LEVOTHYROXINE
  9. LEXAPRO [Concomitant]
     Active Substance: ESCITALOPRAM OXALATE
  10. MIRALAX [Suspect]
     Active Substance: POLYETHYLENE GLYCOL 3350
     Indication: CONSTIPATION
     Dosage: 1 DF, QD
     Route: 048
     Dates: start: 2005
  11. DILTIAZEM [Concomitant]
     Active Substance: DILTIAZEM
  12. BENAZEPRIL [Concomitant]
     Active Substance: BENAZEPRIL HYDROCHLORIDE

REACTIONS (1)
  - Product use issue [None]

NARRATIVE: CASE EVENT DATE: 2005
